FAERS Safety Report 21460644 (Version 1)
Quarter: 2022Q4

REPORT INFORMATION
  Report Type: Spontaneous
  Country: GB (occurrence: GB)
  Receive Date: 20221015
  Receipt Date: 20221015
  Transmission Date: 20230112
  Serious: Yes (Hospitalization, Other)
  Sender: FDA-Public Use
  Company Number: GB-MHRA-MED-202210051651564110-DFYMS

PATIENT
  Age: 25 Year
  Sex: Male

DRUGS (3)
  1. OLANZAPINE [Suspect]
     Active Substance: OLANZAPINE
     Indication: Psychotic disorder
     Dosage: 10 MILLIGRAM, ONCE A DAY (AT NIGHT)
     Route: 065
     Dates: start: 20220815
  2. ZUCLOPENTHIXOL [Suspect]
     Active Substance: ZUCLOPENTHIXOL
     Indication: Psychotic disorder
     Dosage: 400 MILLIGRAM, EVERY WEEK
     Route: 065
     Dates: start: 20220927, end: 20220927
  3. VALPROATE SODIUM [Concomitant]
     Active Substance: VALPROATE SODIUM
     Indication: Affective disorder
     Dosage: UNK
     Route: 065
     Dates: start: 20220815

REACTIONS (2)
  - Torticollis [Recovered/Resolved]
  - Oculogyric crisis [Recovered/Resolved]

NARRATIVE: CASE EVENT DATE: 20220927
